FAERS Safety Report 24268853 (Version 1)
Quarter: 2024Q3

REPORT INFORMATION
  Report Type: Spontaneous
  Country: US (occurrence: None)
  Receive Date: 20240829
  Receipt Date: 20240829
  Transmission Date: 20241016
  Serious: Yes (Other)
  Sender: Public
  Company Number: None

PATIENT
  Age: 32 Year
  Sex: Female
  Weight: 65.25 kg

DRUGS (1)
  1. KENALOG [Suspect]
     Active Substance: TRIAMCINOLONE ACETONIDE
     Indication: Guttate psoriasis
     Dates: start: 20240805, end: 20240805

REACTIONS (2)
  - Menstrual disorder [None]
  - Polymenorrhagia [None]

NARRATIVE: CASE EVENT DATE: 20240815
